FAERS Safety Report 7222733-4 (Version None)
Quarter: 2011Q1

REPORT INFORMATION
  Report Type: 
  Country: None (occurrence: None)
  Receive Date: 20110106
  Receipt Date: 20110106
  Transmission Date: 20110831
  Serious: Yes (Hospitalization)
  Sender: FDA-Public Use
  Company Number: None

PATIENT
  Sex: Male
  Weight: 83.0083 kg

DRUGS (13)
  1. RANIBIZUMAB 2.0 MG GENENTECH [Suspect]
     Indication: MACULAR DEGENERATION
     Dosage: 0.05 ML PRN INTRAVITREAL
     Dates: start: 20100908
  2. RANIBIZUMAB 2.0 MG GENENTECH [Suspect]
     Indication: MACULAR DEGENERATION
     Dosage: 0.05 ML PRN INTRAVITREAL
     Dates: start: 20101207
  3. RANIBIZUMAB 2.0 MG GENENTECH [Suspect]
     Indication: MACULAR DEGENERATION
     Dosage: 0.05 ML PRN INTRAVITREAL
     Dates: start: 20100804
  4. RANIBIZUMAB 2.0 MG GENENTECH [Suspect]
     Indication: MACULAR DEGENERATION
     Dosage: 0.05 ML PRN INTRAVITREAL
     Dates: start: 20101103
  5. RANIBIZUMAB 2.0 MG GENENTECH [Suspect]
     Indication: MACULAR DEGENERATION
     Dosage: 0.05 ML PRN INTRAVITREAL
     Dates: start: 20101006
  6. AMIODARONE [Concomitant]
  7. FERROUS SULFATE TAB [Concomitant]
  8. ALPHAGAN [Concomitant]
  9. LOVASTATIN [Concomitant]
  10. LUMIGAN [Concomitant]
  11. FUROSEMIDE [Concomitant]
  12. DIGOXIN [Concomitant]
  13. DORZOLAMIDE HYDROCHLORIDE AND TIMOLOL MALEATE [Concomitant]

REACTIONS (1)
  - TRANSIENT ISCHAEMIC ATTACK [None]
